FAERS Safety Report 18930345 (Version 3)
Quarter: 2021Q4

REPORT INFORMATION
  Report Type: Spontaneous
  Country: US (occurrence: None)
  Receive Date: 20210224
  Receipt Date: 20211123
  Transmission Date: 20220303
  Serious: Yes (Other)
  Sender: FDA-Public Use
  Company Number: 2021A061624

PATIENT
  Age: 36 Year
  Sex: Male
  Weight: 110.2 kg

DRUGS (36)
  1. NEXIUM [Suspect]
     Active Substance: ESOMEPRAZOLE MAGNESIUM
     Indication: Gastrooesophageal reflux disease
     Route: 048
  2. NEXIUM 24HR [Suspect]
     Active Substance: ESOMEPRAZOLE MAGNESIUM
     Indication: Gastrooesophageal reflux disease
     Route: 048
  3. PRILOSEC [Suspect]
     Active Substance: OMEPRAZOLE MAGNESIUM
     Indication: Gastrooesophageal reflux disease
     Route: 048
  4. PRILOSEC [Suspect]
     Active Substance: OMEPRAZOLE MAGNESIUM
     Indication: Gastrooesophageal reflux disease
     Dosage: GENERIC 20 MG, 40 MG
     Route: 065
     Dates: start: 2012
  5. PRILOSEC OTC [Suspect]
     Active Substance: OMEPRAZOLE MAGNESIUM
     Indication: Gastrooesophageal reflux disease
     Route: 048
  6. AZOR [Concomitant]
     Active Substance: AMLODIPINE BESYLATE\OLMESARTAN MEDOXOMIL
  7. HYDRALAZINE [Concomitant]
     Active Substance: HYDRALAZINE HYDROCHLORIDE
     Indication: Hypertension
  8. METOPROLOL [Concomitant]
     Active Substance: METOPROLOL
  9. LACTULOSE [Concomitant]
     Active Substance: LACTULOSE
  10. BACLOFEN [Concomitant]
     Active Substance: BACLOFEN
  11. CLONIDINE [Concomitant]
     Active Substance: CLONIDINE
  12. MINOXIDIL [Concomitant]
     Active Substance: MINOXIDIL
  13. VENTOLIN [Concomitant]
     Active Substance: ALBUTEROL SULFATE
  14. TIZANIDINE [Concomitant]
     Active Substance: TIZANIDINE
  15. SORBITOL [Concomitant]
     Active Substance: SORBITOL
  16. VIAGRA [Concomitant]
     Active Substance: SILDENAFIL CITRATE
  17. PROMETHAZINE [Concomitant]
     Active Substance: PROMETHAZINE HYDROCHLORIDE
  18. PRILOCAINE/LIDOCAINE [Concomitant]
  19. RENVELA [Concomitant]
     Active Substance: SEVELAMER CARBONATE
  20. HYDROCODON-APAP [Concomitant]
  21. GABAPENTIN [Concomitant]
     Active Substance: GABAPENTIN
  22. ONDANSETRON [Concomitant]
     Active Substance: ONDANSETRON
  23. ALPRAZOLAM [Concomitant]
     Active Substance: ALPRAZOLAM
  24. CIPROFLOXACIN [Concomitant]
     Active Substance: CIPROFLOXACIN
  25. MYCOPHENOLIC ACID [Concomitant]
     Active Substance: MYCOPHENOLIC ACID
  26. PREDNISONE [Concomitant]
     Active Substance: PREDNISONE
  27. FAMOTIDINE [Concomitant]
     Active Substance: FAMOTIDINE
  28. AMITRIPTYLINE [Concomitant]
     Active Substance: AMITRIPTYLINE
     Indication: Affective disorder
  29. LOSARTAN [Concomitant]
     Active Substance: LOSARTAN
     Indication: Hypertension
  30. ROSUVASTATIN [Concomitant]
     Active Substance: ROSUVASTATIN
     Indication: Hyperlipidaemia
  31. FUROSEMIDE [Concomitant]
     Active Substance: FUROSEMIDE
     Indication: Oedema
  32. HYDROCHLOROTHIAZIDE [Concomitant]
     Active Substance: HYDROCHLOROTHIAZIDE
     Indication: Oedema
  33. OLMESARTAN [Concomitant]
     Active Substance: OLMESARTAN
     Indication: Hypertension
  34. DICLOFENAC [Concomitant]
     Active Substance: DICLOFENAC
     Indication: Inflammation
  35. AZITHROMYCIN [Concomitant]
     Active Substance: AZITHROMYCIN
     Indication: Infection
  36. RANITIDINE [Concomitant]
     Active Substance: RANITIDINE

REACTIONS (4)
  - Chronic kidney disease [Not Recovered/Not Resolved]
  - End stage renal disease [Not Recovered/Not Resolved]
  - Nephrogenic anaemia [Unknown]
  - Acute kidney injury [Not Recovered/Not Resolved]

NARRATIVE: CASE EVENT DATE: 20100101
